FAERS Safety Report 8077614-3 (Version None)
Quarter: 2012Q1

REPORT INFORMATION
  Report Type: 
  Country: None (occurrence: None)
  Receive Date: 20120127
  Receipt Date: 20120123
  Transmission Date: 20120608
  Serious: Yes (Hospitalization)
  Sender: FDA-Public Use
  Company Number: NO-PFIZER INC-2010059750

PATIENT
  Age: 13 Year
  Sex: Female

DRUGS (2)
  1. METHOTREXATE SODIUM [Interacting]
     Indication: BONE SARCOMA
     Dosage: 4-HOUR INTRAVENOUS INFUSION
     Route: 041
     Dates: start: 20100419, end: 20100419
  2. NEURONTIN [Suspect]
     Indication: PAIN IN EXTREMITY
     Dosage: 1200 MG, UNK
     Route: 048
     Dates: start: 20100413, end: 20100426

REACTIONS (2)
  - DRUG INTERACTION [None]
  - DRUG LEVEL INCREASED [None]
